FAERS Safety Report 4594667-5 (Version None)
Quarter: 2005Q1

REPORT INFORMATION
  Report Type: 
  Country: None (occurrence: None)
  Receive Date: 20050301
  Receipt Date: 20041209
  Transmission Date: 20050727
  Serious: Yes (Disabling, Other)
  Sender: FDA-Public Use
  Company Number: US-BRISTOL-MYERS SQUIBB COMPANY-12790465

PATIENT
  Age: 58 Year
  Sex: Male

DRUGS (2)
  1. ERBITUX [Suspect]
     Indication: NEOPLASM MALIGNANT
     Dosage: THERAPY DATES 10-NOV-04 TO 24-NOV-04
     Route: 042
     Dates: start: 20041101, end: 20041101
  2. BENADRYL [Concomitant]
     Indication: PREMEDICATION

REACTIONS (2)
  - NEOPLASM MALIGNANT [None]
  - RASH [None]
